FAERS Safety Report 26194526 (Version 1)
Quarter: 2025Q4

REPORT INFORMATION
  Report Type: Report from Study
  Country: US (occurrence: US)
  Receive Date: 20251224
  Receipt Date: 20251224
  Transmission Date: 20260118
  Serious: Yes (Hospitalization, Other)
  Sender: ABBVIE
  Company Number: US-ABBVIE-6603364

PATIENT
  Sex: Female

DRUGS (1)
  1. RESTASIS [Suspect]
     Active Substance: CYCLOSPORINE
     Indication: Product used for unknown indication
     Dosage: 0.05%, FREQUENCY TEXT: 1 DROP IN EACH EYE TWICE A DAY, ROA: OPHTHALMIC
     Route: 065

REACTIONS (1)
  - Gallbladder operation [Recovering/Resolving]
